FAERS Safety Report 7250955 (Version 5)
Quarter: 2015Q4

REPORT INFORMATION
  Report Type: Report from Study
  Country: US (occurrence: US)
  Receive Date: 20100121
  Receipt Date: 20151218
  Transmission Date: 20160305
  Serious: Yes (Hospitalization)
  Sender: FDA-Public Use
  Company Number: US-JNJFOC-20100103707

PATIENT
  Age: 16 Year
  Sex: Male
  Weight: 54 kg

DRUGS (6)
  1. INFLIXIMAB [Suspect]
     Active Substance: INFLIXIMAB
     Indication: CROHN^S DISEASE
     Route: 042
     Dates: start: 20081209, end: 200905
  2. HUMIRA [Concomitant]
     Active Substance: ADALIMUMAB
  3. BUDESONIDE. [Concomitant]
     Active Substance: BUDESONIDE
  4. 5-ASA [Concomitant]
     Active Substance: MESALAMINE
     Route: 048
  5. PREVACID [Concomitant]
     Active Substance: LANSOPRAZOLE
  6. INFLIXIMAB [Suspect]
     Active Substance: INFLIXIMAB
     Indication: CROHN^S DISEASE
     Route: 042
     Dates: start: 20070723

REACTIONS (2)
  - Intestinal obstruction [Recovered/Resolved]
  - Enterovesical fistula [Recovered/Resolved]

NARRATIVE: CASE EVENT DATE: 20090901
